FAERS Safety Report 20839091 (Version 2)
Quarter: 2022Q2

REPORT INFORMATION
  Report Type: Spontaneous
  Country: TT (occurrence: TT)
  Receive Date: 20220517
  Receipt Date: 20220520
  Transmission Date: 20220721
  Serious: Yes (Death, Hospitalization, Other)
  Sender: FDA-Public Use
  Company Number: TT-BoehringerIngelheim-2022-BI-165815

PATIENT
  Age: 70 Year
  Sex: Female

DRUGS (3)
  1. PRADAXA [Suspect]
     Active Substance: DABIGATRAN ETEXILATE MESYLATE
     Indication: Pulmonary embolism
     Dosage: STARTED WITH 150 MG?THE DOSE OF PRADAXA 150 MG WAS RESUME
  2. PRADAXA [Suspect]
     Active Substance: DABIGATRAN ETEXILATE MESYLATE
     Dosage: ONCE THE PATIENT WAS IN GOOD CONDITION SHE RESUMED PRADAXA AT THE 110 MG DOSE
  3. ENOXAPARIN SODIUM [Concomitant]
     Active Substance: ENOXAPARIN SODIUM
     Indication: Product used for unknown indication
     Dosage: ONE DOSE

REACTIONS (5)
  - Death [Fatal]
  - Chest pain [Unknown]
  - Oedema [Unknown]
  - Syncope [Unknown]
  - Rectal haemorrhage [Recovered/Resolved]

NARRATIVE: CASE EVENT DATE: 20220415
